FAERS Safety Report 8789546 (Version 1)
Quarter: 2012Q4

REPORT INFORMATION
  Report Type: Spontaneous
  Country: US (occurrence: None)
  Receive Date: 20120905
  Receipt Date: 20120905
  Transmission Date: 20130627
  Serious: Yes (Other)
  Sender: FDA-Public Use
  Company Number: DSA_59212_2012

PATIENT
  Sex: Female

DRUGS (4)
  1. XENAZINE 12.5 MG (NOT SPECIFIED) [Suspect]
     Indication: DYSKINESIA
     Dosage: One tablet the morning, one tablet at noon, and two tablets at bedtime Oral)
     Route: 048
     Dates: start: 201008
  2. CHANTIX [Suspect]
     Indication: SMOKING CESSATION THERAPY
  3. LEXAPRO [Concomitant]
  4. XANAX [Concomitant]

REACTIONS (2)
  - Depression [None]
  - Self-injurious ideation [None]
